FAERS Safety Report 9820928 (Version 1)
Quarter: 2013Q4

REPORT INFORMATION
  Report Type: Spontaneous
  Country: US (occurrence: None)
  Receive Date: 20131028
  Receipt Date: 20131028
  Transmission Date: 20140711
  Serious: Yes (Other)
  Sender: FDA-Public Use
  Company Number: 2013US001564

PATIENT
  Age: 78 Year
  Sex: Female
  Weight: 88 kg

DRUGS (7)
  1. ICLUSIG [Suspect]
     Indication: CHROMOSOME ANALYSIS ABNORMAL
     Route: 048
     Dates: start: 20130128, end: 20130505
  2. ICLUSIG [Suspect]
     Indication: ACUTE LYMPHOCYTIC LEUKAEMIA
     Route: 048
     Dates: start: 20130128, end: 20130505
  3. ASPIRIN (ASPIRIN) [Concomitant]
  4. LASIX (FUROSEMIDE) [Concomitant]
  5. POTASSIUM (POTASSIUM) [Concomitant]
  6. ONDANSETRON (ONDANSETRON) [Concomitant]
  7. METOPROLOL (METOPROLOL) [Concomitant]

REACTIONS (1)
  - Unevaluable event [None]
